FAERS Safety Report 6395602-X (Version None)
Quarter: 2009Q4

REPORT INFORMATION
  Report Type: 
  Country: None (occurrence: None)
  Receive Date: 20091009
  Receipt Date: 20090930
  Transmission Date: 20100525
  Serious: Yes (Other)
  Sender: FDA-Public Use
  Company Number: US-JNJCH-2009026118

PATIENT
  Age: 47 Year
  Sex: Male
  Weight: 90.7 kg

DRUGS (2)
  1. ROGAINE [Suspect]
     Indication: ALOPECIA
     Dosage: TEXT:AS DIRECTED TWICE
     Route: 061
     Dates: start: 20081201, end: 20090915
  2. DRUG, UNSPECIFIED [Concomitant]
     Indication: SINUS DISORDER
     Dosage: TEXT:UNSPECIFIED
     Route: 065

REACTIONS (1)
  - STAPHYLOCOCCAL INFECTION [None]
